FAERS Safety Report 12188896 (Version 1)
Quarter: 2016Q1

REPORT INFORMATION
  Report Type: Spontaneous
  Country: US (occurrence: US)
  Receive Date: 20160317
  Receipt Date: 20160317
  Transmission Date: 20160526
  Serious: No
  Sender: FDA-Public Use
  Company Number: US-PERRIGO-15US009978

PATIENT
  Age: 45 Year
  Sex: Male
  Weight: 113.38 kg

DRUGS (4)
  1. TESTOSTERONE CYPIONATE. [Suspect]
     Active Substance: TESTOSTERONE CYPIONATE
     Indication: BLOOD TESTOSTERONE DECREASED
     Dosage: 200 MG, SINGLE
     Route: 030
     Dates: start: 201508, end: 201508
  2. OMEPRAZOLE. [Concomitant]
     Active Substance: OMEPRAZOLE
     Indication: GASTROOESOPHAGEAL REFLUX DISEASE
     Dosage: 20 MG, QD
     Route: 048
  3. TESTOSTERONE CYPIONATE. [Suspect]
     Active Substance: TESTOSTERONE CYPIONATE
     Dosage: 200 MG, SINGLE
     Route: 030
     Dates: start: 20150901, end: 20150901
  4. TESTOSTERONE CYPIONATE. [Suspect]
     Active Substance: TESTOSTERONE CYPIONATE
     Indication: BLOOD TESTOSTERONE DECREASED
     Dosage: 200 MG, SINGLE
     Route: 030
     Dates: start: 20150919, end: 20150919

REACTIONS (9)
  - Chills [Recovering/Resolving]
  - Injection site warmth [Recovering/Resolving]
  - Cold sweat [Recovering/Resolving]
  - Drug administered at inappropriate site [Recovered/Resolved]
  - Influenza like illness [Recovering/Resolving]
  - Injection site swelling [Recovering/Resolving]
  - White blood cell count increased [Unknown]
  - Injection site discomfort [Recovered/Resolved]
  - Injection site erythema [Recovering/Resolving]

NARRATIVE: CASE EVENT DATE: 201508
